FAERS Safety Report 9999605 (Version 2)
Quarter: 2014Q3

REPORT INFORMATION
  Report Type: Spontaneous
  Country: US (occurrence: US)
  Receive Date: 20140312
  Receipt Date: 20140805
  Transmission Date: 20150326
  Serious: Yes (Hospitalization)
  Sender: FDA-Public Use
  Company Number: US-BAYER-2014-033316

PATIENT
  Age: 2 Year
  Sex: Female
  Weight: 11 kg

DRUGS (2)
  1. BAYER CHEWABLE LOW DOSE BABY ASPIRIN TABLET ORANGE [Suspect]
     Active Substance: ASPIRIN
     Route: 048
  2. BAYER CHEWABLE LOW DOSE BABY ASPIRIN TABLET ORANGE [Suspect]
     Active Substance: ASPIRIN
     Dosage: UPTO 28 DF, ONCE
     Route: 048
     Dates: start: 20140302, end: 20140302

REACTIONS (5)
  - Failure of child resistant mechanism for pharmaceutical product [None]
  - Accidental overdose [None]
  - Accidental exposure to product by child [None]
  - Off label use [None]
  - Oxygen saturation decreased [Recovering/Resolving]

NARRATIVE: CASE EVENT DATE: 20140302
